FAERS Safety Report 5871785-2 (Version None)
Quarter: 2008Q3

REPORT INFORMATION
  Report Type: 
  Country: None (occurrence: None)
  Receive Date: 20080904
  Receipt Date: 20080904
  Transmission Date: 20090109
  Serious: Yes (Disabling, Other)
  Sender: FDA-Public Use
  Company Number: None

PATIENT
  Sex: Female
  Weight: 52.1637 kg

DRUGS (1)
  1. MIRAPEX [Suspect]
     Indication: PARKINSON'S DISEASE
     Dosage: 2 MG TID 3 TIMES DAILY ORAL
     Route: 048
     Dates: start: 20041001, end: 20070901

REACTIONS (4)
  - DYSGRAPHIA [None]
  - ECONOMIC PROBLEM [None]
  - GAMBLING [None]
  - JUDGEMENT IMPAIRED [None]
